FAERS Safety Report 8444495-5 (Version None)
Quarter: 2012Q2

REPORT INFORMATION
  Report Type: 
  Country: None (occurrence: None)
  Receive Date: 20120612
  Receipt Date: 20120612
  Transmission Date: 20120825
  Serious: Yes (Other)
  Sender: FDA-Public Use
  Company Number: None

PATIENT
  Age: 60 Year
  Sex: Male
  Weight: 58 kg

DRUGS (1)
  1. METHIMAZOLE [Suspect]
     Indication: THYROIDITIS
     Dosage: 10 MG DAILY ORAL
     Route: 048
     Dates: start: 20110902, end: 20110920

REACTIONS (1)
  - NEUTROPHIL COUNT DECREASED [None]
